FAERS Safety Report 10580217 (Version 2)
Quarter: 2014Q4

REPORT INFORMATION
  Report Type: Spontaneous
  Country: FR (occurrence: FR)
  Receive Date: 20141112
  Receipt Date: 20141201
  Transmission Date: 20150529
  Serious: Yes (Hospitalization)
  Sender: FDA-Public Use
  Company Number: FR-SA-2014SA151263

PATIENT
  Age: 87 Year
  Sex: Female

DRUGS (12)
  1. TEMESTA [Interacting]
     Active Substance: LORAZEPAM
     Route: 065
     Dates: start: 20140406, end: 201410
  2. LASILIX [Concomitant]
     Active Substance: FUROSEMIDE
     Dates: start: 20130918
  3. MIANSERINE [Interacting]
     Active Substance: MIANSERIN HYDROCHLORIDE
     Route: 065
  4. STILNOX [Interacting]
     Active Substance: ZOLPIDEM TARTRATE
     Indication: INSOMNIA
     Route: 065
     Dates: start: 20110406, end: 201410
  5. AMLOR [Suspect]
     Active Substance: AMLODIPINE BESYLATE
     Indication: HYPERTENSION
     Route: 065
     Dates: start: 20110722, end: 20141009
  6. CRESTOR [Concomitant]
     Active Substance: ROSUVASTATIN CALCIUM
     Dates: start: 20130918, end: 201410
  7. COAPROVEL [Suspect]
     Active Substance: HYDROCHLOROTHIAZIDE\IRBESARTAN
     Indication: HYPERTENSION
     Route: 065
     Dates: start: 20110722, end: 201410
  8. DOLIPRANE [Concomitant]
     Active Substance: ACETAMINOPHEN
     Dates: start: 20130927, end: 201410
  9. SPASFON-LYOC [Concomitant]
     Active Substance: PHLOROGLUCINOL
     Dates: start: 20140927, end: 201410
  10. ECONAZOLE [Concomitant]
     Active Substance: ECONAZOLE
     Dates: end: 201410
  11. PRADAXA [Concomitant]
     Active Substance: DABIGATRAN ETEXILATE MESYLATE
     Dates: start: 20130918, end: 201410
  12. INEXIUM [Concomitant]
     Active Substance: ESOMEPRAZOLE
     Indication: ABDOMINAL PAIN UPPER

REACTIONS (4)
  - Drug interaction [Unknown]
  - Malaise [Recovered/Resolved]
  - Hypotension [Recovered/Resolved]
  - Fall [Recovered/Resolved]

NARRATIVE: CASE EVENT DATE: 20141003
